FAERS Safety Report 8990141 (Version 3)
Quarter: 2013Q1

REPORT INFORMATION
  Report Type: Spontaneous
  Country: US (occurrence: US)
  Receive Date: 20121228
  Receipt Date: 20130314
  Transmission Date: 20140127
  Serious: Yes (Hospitalization, Other)
  Sender: FDA-Public Use
  Company Number: US-PFIZER INC-2012323248

PATIENT
  Age: 66 Year
  Sex: Female
  Weight: 78.91 kg

DRUGS (13)
  1. SUTENT [Suspect]
     Indication: GASTROINTESTINAL STROMAL TUMOUR
     Dosage: UNK
     Dates: start: 20121203
  2. SUTENT [Suspect]
     Dosage: 50 MG, ALTERNATE DAY, FOR 28 DAYS ON FOLLOWED BY 14 DAYS OFF
     Dates: start: 20130225
  3. DILAUDID [Concomitant]
     Dosage: UNK
  4. IMODIUM [Concomitant]
     Dosage: UNK
  5. ATENOLOL [Concomitant]
     Dosage: UNK
  6. SIMVASTATIN [Concomitant]
     Dosage: UNK
  7. CLONIDINE [Concomitant]
     Dosage: UNK
  8. HYDROCHLOROTHIAZIDE [Concomitant]
     Dosage: UNK
  9. NORVASC [Concomitant]
     Dosage: UNK
  10. OMEPRAZOLE [Concomitant]
     Dosage: UNK
  11. ZOFRAN [Concomitant]
     Dosage: UNK
  12. TYLENOL [Concomitant]
     Dosage: P.R.N
  13. MAGIC MOUTHWASH [Concomitant]
     Dosage: UNK

REACTIONS (14)
  - Asthenia [Recovering/Resolving]
  - Pneumonia [Unknown]
  - Stomatitis [Unknown]
  - Weight decreased [Unknown]
  - Eyelid irritation [Unknown]
  - Scab [Unknown]
  - Feeling abnormal [Unknown]
  - Depression [Unknown]
  - Nausea [Unknown]
  - Vomiting [Unknown]
  - Decreased appetite [Unknown]
  - Dysgeusia [Unknown]
  - Fatigue [Unknown]
  - Gastrooesophageal reflux disease [Unknown]
